FAERS Safety Report 7817609-5 (Version None)
Quarter: 2011Q4

REPORT INFORMATION
  Report Type: 
  Country: None (occurrence: None)
  Receive Date: 20111017
  Receipt Date: 20111011
  Transmission Date: 20120403
  Serious: Yes (Hospitalization, Other)
  Sender: FDA-Public Use
  Company Number: PHHO2009US13615

PATIENT
  Sex: Female
  Weight: 88.7 kg

DRUGS (5)
  1. PROPRANOLOL [Concomitant]
  2. COZAAR [Concomitant]
  3. GILENYA [Suspect]
     Indication: MULTIPLE SCLEROSIS
     Dosage: DOSE BLINDED
     Route: 048
     Dates: start: 20070910
  4. MAXALT [Concomitant]
  5. LISINOPRIL [Concomitant]

REACTIONS (13)
  - HYPERHIDROSIS [None]
  - VOMITING [None]
  - ANXIETY [None]
  - CHEST DISCOMFORT [None]
  - ACUTE CORONARY SYNDROME [None]
  - CORONARY ARTERY DISEASE [None]
  - CORONARY ARTERY OCCLUSION [None]
  - HEADACHE [None]
  - HYPERTENSION [None]
  - ACUTE MYOCARDIAL INFARCTION [None]
  - CHEST PAIN [None]
  - AORTIC VALVE INCOMPETENCE [None]
  - NAUSEA [None]
